FAERS Safety Report 5103821-5 (Version None)
Quarter: 2006Q3

REPORT INFORMATION
  Report Type: 
  Country: None (occurrence: None)
  Receive Date: 20060911
  Receipt Date: 20060828
  Transmission Date: 20061208
  Serious: Yes (Hospitalization, Other)
  Sender: FDA-Public Use
  Company Number: 2006106014

PATIENT
  Age: 62 Year
  Sex: Female

DRUGS (3)
  1. TAHOR (ATORVASTATIN) [Suspect]
     Indication: DRUG USE FOR UNKNOWN INDICATION
     Dosage: 10 MG
     Dates: start: 20041126, end: 20060711
  2. ATENOLOL [Concomitant]
  3. EFFEXOR [Concomitant]

REACTIONS (3)
  - RHABDOMYOLYSIS [None]
  - SPEECH DISORDER [None]
  - VERTIGO [None]
